FAERS Safety Report 12992955 (Version 2)
Quarter: 2016Q4

REPORT INFORMATION
  Report Type: Report from Study
  Country: US (occurrence: US)
  Receive Date: 20161202
  Receipt Date: 20161216
  Transmission Date: 20170207
  Serious: Yes (Hospitalization)
  Sender: FDA-Public Use
  Company Number: US-ACTELION-A-US2016-146210

PATIENT
  Age: 40 Year
  Sex: Female

DRUGS (6)
  1. CELLCEPT [Concomitant]
     Active Substance: MYCOPHENOLATE MOFETIL\MYCOPHENOLATE MOFETIL HYDROCHLORIDE
     Dosage: UNK
     Dates: start: 2013
  2. PREDNISONE. [Concomitant]
     Active Substance: PREDNISONE
     Dosage: UNK
     Dates: start: 2012
  3. OPSUMIT [Suspect]
     Active Substance: MACITENTAN
     Indication: PULMONARY HYPERTENSION
     Dosage: 10 MG, QD
     Route: 048
     Dates: start: 20160914
  4. FLOLAN [Concomitant]
     Active Substance: EPOPROSTENOL SODIUM
  5. DIGOXIN. [Concomitant]
     Active Substance: DIGOXIN
     Dosage: UNK
     Dates: start: 2012
  6. PLAQUENIL [Concomitant]
     Active Substance: HYDROXYCHLOROQUINE SULFATE
     Dosage: UNK
     Dates: start: 2013

REACTIONS (5)
  - Productive cough [Not Recovered/Not Resolved]
  - Pneumonia bacterial [Not Recovered/Not Resolved]
  - Malaise [Not Recovered/Not Resolved]
  - Dyspnoea [Not Recovered/Not Resolved]
  - Oxygen saturation decreased [Not Recovered/Not Resolved]

NARRATIVE: CASE EVENT DATE: 20161116
